FAERS Safety Report 5511795-8 (Version None)
Quarter: 2007Q4

REPORT INFORMATION
  Report Type: 
  Country: None (occurrence: None)
  Receive Date: 20071109
  Receipt Date: 20071030
  Transmission Date: 20080405
  Serious: Yes (Hospitalization)
  Sender: FDA-Public Use
  Company Number: SE-PFIZER INC-2007091004

PATIENT
  Age: 81 Year
  Sex: Female

DRUGS (10)
  1. CEFPODOXIME PROXETIL [Suspect]
     Indication: UPPER RESPIRATORY TRACT INFECTION
     Dosage: DAILY DOSE:400MG
     Route: 048
     Dates: start: 20070703, end: 20070704
  2. VALSARTAN [Concomitant]
  3. OPTINATE SEPTIMUM [Concomitant]
  4. WARAN [Concomitant]
  5. ALLOPURINOL [Concomitant]
  6. LASIX [Concomitant]
  7. ISOPTIN [Concomitant]
  8. LANSOPRAZOLE [Concomitant]
  9. PREDNISOLON [Concomitant]
  10. SERETIDE DISKUS [Concomitant]

REACTIONS (4)
  - COLD SWEAT [None]
  - DIARRHOEA [None]
  - SYNCOPE [None]
  - VOMITING [None]
